FAERS Safety Report 5325127-1 (Version None)
Quarter: 2007Q2

REPORT INFORMATION
  Report Type: 
  Country: None (occurrence: None)
  Receive Date: 20070511
  Receipt Date: 20070511
  Transmission Date: 20071010
  Serious: Yes (Other)
  Sender: FDA-Public Use
  Company Number: None

PATIENT
  Sex: Female
  Weight: 68.4932 kg

DRUGS (7)
  1. AMBIEN [Suspect]
     Indication: INSOMNIA
     Dosage: 1 TABLET HS PRN INSOMNIA PO
     Route: 048
     Dates: start: 20061101, end: 20070508
  2. ZOLOFT [Concomitant]
  3. LASIX [Concomitant]
  4. PREVACID [Concomitant]
  5. XANAX [Concomitant]
  6. COREG [Concomitant]
  7. COLACE [Concomitant]

REACTIONS (4)
  - ABNORMAL BEHAVIOUR [None]
  - ABNORMAL SLEEP-RELATED EVENT [None]
  - ANTEROGRADE AMNESIA [None]
  - MENTAL STATUS CHANGES [None]
